FAERS Safety Report 18750516 (Version 2)
Quarter: 2021Q1

REPORT INFORMATION
  Report Type: Report from Study
  Country: US (occurrence: US)
  Receive Date: 20210118
  Receipt Date: 20210129
  Transmission Date: 20210419
  Serious: Yes (Death, Hospitalization, Other)
  Sender: FDA-Public Use
  Company Number: US-ACADIA PHARMACEUTICALS INC.-ACA-2021-PIM-000043

PATIENT
  Sex: Male

DRUGS (17)
  1. BD PEN MINI [Concomitant]
  2. NORVASC [Concomitant]
     Active Substance: AMLODIPINE BESYLATE
     Dosage: 1 TAB PRN
     Route: 048
  3. SINEMET [Concomitant]
     Active Substance: CARBIDOPA\LEVODOPA
     Dosage: 50?200 MG 1 TAB AT BEDTIME
     Route: 048
  4. MANDELAMINE [Concomitant]
     Active Substance: METHENAMINE MANDELATE
     Dosage: 1 GRAM, BID
     Route: 048
  5. 1ST MEDXPATCH WITH LIDOCAINE [Concomitant]
     Dosage: 40.0375?5?20 % PTCH
     Route: 061
  6. VITAMIN C [Concomitant]
     Active Substance: ASCORBIC ACID
     Route: 048
  7. ASPIRIN EC [Concomitant]
     Active Substance: ASPIRIN
     Dosage: 81 MILLIGRAM, QD
     Route: 048
  8. SINEMET [Concomitant]
     Active Substance: CARBIDOPA\LEVODOPA
     Dosage: 25?100 MG 2 TABS TID
     Route: 048
  9. FLONASE [MOMETASONE FUROATE] [Concomitant]
     Active Substance: MOMETASONE FUROATE
     Dosage: SHAKE LQ AND U 1 TO 2 SPRAYS QD PRN
     Route: 045
  10. SUR?FIT NATURA STOMAHESIVE [Concomitant]
  11. CALCIUM CITRATE + D [Concomitant]
     Active Substance: CALCIUM CITRATE\CHOLECALCIFEROL
     Route: 048
  12. DESYREL [Concomitant]
     Active Substance: TRAZODONE HYDROCHLORIDE
     Dosage: 50 MILLIGRAM NIGHTLY
     Route: 048
  13. NUPLAZID [Suspect]
     Active Substance: PIMAVANSERIN TARTRATE
     Indication: PARKINSON^S DISEASE
     Dosage: 10 MILLIGRAM, 2 TABLETS EVERY NIGHT
     Route: 048
     Dates: start: 20190826, end: 20210107
  14. ALTACE [Concomitant]
     Active Substance: RAMIPRIL
     Dosage: 2.5 MILLIGRAM, QD
     Route: 048
  15. VITAMIN B12 [Concomitant]
     Active Substance: CYANOCOBALAMIN
     Route: 048
  16. SEROQUEL [Concomitant]
     Active Substance: QUETIAPINE FUMARATE
     Dosage: 1/2 TAB NIGHTLY FOR 3 DAYS, THEN 1 TAB NIGHTLY ? THEREAFTER
  17. EXELON [Concomitant]
     Active Substance: RIVASTIGMINE TARTRATE
     Dosage: 4.6  MG/24HR PT24, 1 PATCH EVERY 24 HRS
     Route: 061

REACTIONS (2)
  - Prescribed underdose [Unknown]
  - COVID-19 [Recovered/Resolved]
